FAERS Safety Report 25743356 (Version 2)
Quarter: 2025Q3

REPORT INFORMATION
  Report Type: Spontaneous
  Country: US (occurrence: US)
  Receive Date: 20250830
  Receipt Date: 20250915
  Transmission Date: 20251021
  Serious: No
  Sender: SANOFI AVENTIS
  Company Number: US-SA-2025SA258982

PATIENT
  Age: 71 Year
  Sex: Female
  Weight: 100 kg

DRUGS (11)
  1. DUPIXENT [Suspect]
     Active Substance: DUPILUMAB
     Indication: Dermatitis atopic
     Dosage: 300 MG, QOW
     Route: 058
     Dates: start: 202507, end: 202508
  2. GABAPENTIN [Concomitant]
     Active Substance: GABAPENTIN
  3. VITAMIN K1 [Concomitant]
     Active Substance: PHYTONADIONE
  4. PLAQUENIL [Concomitant]
     Active Substance: HYDROXYCHLOROQUINE SULFATE
  5. CELEBREX [Concomitant]
     Active Substance: CELECOXIB
  6. TRAMADOL HCL [Concomitant]
     Active Substance: TRAMADOL HYDROCHLORIDE
  7. PROMETHAZINE HYDROCHLORIDE [Concomitant]
     Active Substance: PROMETHAZINE HYDROCHLORIDE
  8. ROPINIROLE [Concomitant]
     Active Substance: ROPINIROLE
  9. ACTEMRA ACTPEN [Concomitant]
     Active Substance: TOCILIZUMAB
  10. URSODIOL [Concomitant]
     Active Substance: URSODIOL
  11. POTASSIUM [Concomitant]
     Active Substance: POTASSIUM

REACTIONS (7)
  - Perioral dermatitis [Unknown]
  - Rash erythematous [Unknown]
  - Dry skin [Unknown]
  - Rash pruritic [Recovering/Resolving]
  - Skin fissures [Not Recovered/Not Resolved]
  - Skin exfoliation [Unknown]
  - Pruritus [Unknown]

NARRATIVE: CASE EVENT DATE: 20250101
